FAERS Safety Report 9062887 (Version 1)
Quarter: 2013Q1

REPORT INFORMATION
  Report Type: Report from Study
  Country: US (occurrence: US)
  Receive Date: 20130131
  Receipt Date: 20130131
  Transmission Date: 20140127
  Serious: No
  Sender: FDA-Public Use
  Company Number: US-ABBOTT-12P-163-1013664-00

PATIENT
  Age: 29 Year
  Sex: Female

DRUGS (5)
  1. HUMIRA [Suspect]
     Indication: CROHN^S DISEASE
     Dates: start: 20121109, end: 20121109
  2. HUMIRA [Suspect]
     Dates: start: 20121123
  3. PREDNISONE [Concomitant]
     Indication: CROHN^S DISEASE
     Dosage: 30MG IN THE MORNING, 20 MG IN THE EVENING (WEANING OFF)
  4. AZATHIOPRINE [Concomitant]
     Indication: CROHN^S DISEASE
     Dosage: 2- 50MG DAILY
  5. MONONESSA [Concomitant]
     Indication: CONTRACEPTION
     Dosage: DAILY

REACTIONS (2)
  - Swelling [Recovering/Resolving]
  - Swelling [Recovering/Resolving]
